FAERS Safety Report 21458369 (Version 1)
Quarter: 2022Q4

REPORT INFORMATION
  Report Type: Spontaneous
  Country: CN (occurrence: CN)
  Receive Date: 20221014
  Receipt Date: 20221014
  Transmission Date: 20230112
  Serious: Yes (Other)
  Sender: FDA-Public Use
  Company Number: CN-PFIZER INC-PV202200079814

PATIENT
  Age: 2 Year
  Sex: Male
  Weight: 12.5 kg

DRUGS (3)
  1. ZITHROMAX [Suspect]
     Active Substance: AZITHROMYCIN DIHYDRATE
     Indication: Pneumonia
     Dosage: 1.2 BAGS, 1X/DAY
     Route: 048
     Dates: start: 20221003, end: 20221005
  2. PROCATEROL HYDROCHLORIDE [Concomitant]
     Active Substance: PROCATEROL HYDROCHLORIDE
     Indication: Pneumonia
     Dosage: 3 ML, 2X/DAY
     Route: 048
     Dates: start: 20221003, end: 20221005
  3. XIAO ER XUAN FEI ZHI KE [Concomitant]
     Indication: Pneumonia
     Dosage: 5.33 G, 3X/DAY
     Route: 048
     Dates: start: 20221003, end: 20221005

REACTIONS (2)
  - Rash pruritic [Unknown]
  - Drug eruption [Unknown]

NARRATIVE: CASE EVENT DATE: 20221005
